FAERS Safety Report 9892308 (Version 2)
Quarter: 2014Q1

REPORT INFORMATION
  Report Type: Spontaneous
  Country: US (occurrence: US)
  Receive Date: 20140212
  Receipt Date: 20140301
  Transmission Date: 20141002
  Serious: Yes (Hospitalization)
  Sender: FDA-Public Use
  Company Number: US-ASTRAZENECA-2014SE08229

PATIENT
  Age: 82 Day
  Sex: Male

DRUGS (11)
  1. SYNAGIS [Suspect]
     Dosage: 50 MG/0.5 ML / 15MG/KG
     Route: 030
     Dates: start: 201310
  2. SYNAGIS [Suspect]
     Route: 030
     Dates: start: 201311
  3. SYNAGIS [Suspect]
     Route: 030
     Dates: start: 201401
  4. SYNAGIS [Suspect]
     Dosage: 95 MG
     Route: 030
     Dates: start: 20140203
  5. IRON [Concomitant]
  6. DDAVP [Concomitant]
  7. FLONASE [Concomitant]
  8. ZANTAC [Concomitant]
  9. DIUREL [Concomitant]
  10. ATIVAN [Concomitant]
     Dosage: AS NEEDED
  11. ALBUTEROL [Concomitant]
     Dosage: AS NEEDED

REACTIONS (2)
  - Respiratory distress [Recovered/Resolved]
  - Diabetes insipidus [Unknown]
